FAERS Safety Report 16974632 (Version 2)
Quarter: 2019Q4

REPORT INFORMATION
  Report Type: Report from Study
  Country: US (occurrence: US)
  Receive Date: 20191030
  Receipt Date: 20191213
  Transmission Date: 20200122
  Serious: Yes (Hospitalization)
  Sender: FDA-Public Use
  Company Number: US-EISAI MEDICAL RESEARCH-EC-2019-064247

PATIENT
  Age: 62 Year
  Sex: Male

DRUGS (2)
  1. LENVIMA [Suspect]
     Active Substance: LENVATINIB
     Indication: HEPATIC CANCER
     Route: 048
     Dates: start: 20191010, end: 20191012
  2. LENVIMA [Suspect]
     Active Substance: LENVATINIB
     Route: 048
     Dates: start: 20191015, end: 201912

REACTIONS (11)
  - Nausea [Unknown]
  - Tumour haemorrhage [Unknown]
  - Haematemesis [Unknown]
  - Decreased appetite [Unknown]
  - Hypertension [Recovered/Resolved]
  - Abdominal pain [Unknown]
  - Dehydration [Not Recovered/Not Resolved]
  - Mallory-Weiss syndrome [Unknown]
  - Weight decreased [Not Recovered/Not Resolved]
  - Thyroid function test abnormal [Not Recovered/Not Resolved]
  - Hypotension [Not Recovered/Not Resolved]

NARRATIVE: CASE EVENT DATE: 20191012
